FAERS Safety Report 6379613-6 (Version None)
Quarter: 2009Q3

REPORT INFORMATION
  Report Type: 
  Country: None (occurrence: None)
  Receive Date: 20090928
  Receipt Date: 20090917
  Transmission Date: 20100115
  Serious: Yes (Life-Threatening, Other)
  Sender: FDA-Public Use
  Company Number: US-PURDUE-USA-2009-0040135

PATIENT
  Sex: Male
  Weight: 113.2 kg

DRUGS (20)
  1. DILAUDID [Suspect]
     Indication: DRUG USE FOR UNKNOWN INDICATION
  2. PROCRIT                            /00909301/ [Suspect]
     Indication: ANAEMIA
     Dosage: 1 INJ, WEEKLY
     Route: 058
  3. PEGINTRON                          /01543001/ [Suspect]
     Indication: HEPATITIS C
     Dosage: 1 INJ, WEEKLY
     Route: 058
  4. REBETOL [Suspect]
     Indication: HEPATITIS C
     Dosage: 2 CAPSL, DAILY
     Route: 048
  5. METHADONE HYDROCHLORIDE [Suspect]
     Indication: DRUG USE FOR UNKNOWN INDICATION
     Dosage: 5 MG, DAILY
     Route: 048
  6. PROGRAF [Concomitant]
     Indication: DRUG USE FOR UNKNOWN INDICATION
     Dosage: 0.5 MG, BID
  7. CELLCEPT [Concomitant]
     Indication: DRUG USE FOR UNKNOWN INDICATION
     Dosage: 750 MG, BID
  8. SEPTRA [Concomitant]
     Indication: DRUG USE FOR UNKNOWN INDICATION
  9. VALCYTE [Concomitant]
     Indication: DRUG USE FOR UNKNOWN INDICATION
     Dosage: 450 MG, DAILY
  10. VALCYTE [Concomitant]
     Dosage: 900 UNK, UNK
  11. PROTONIX                           /01263201/ [Concomitant]
     Indication: DRUG USE FOR UNKNOWN INDICATION
  12. CELEXA [Concomitant]
     Indication: DRUG USE FOR UNKNOWN INDICATION
     Dosage: 40 MG, DAILY
  13. LANTUS [Concomitant]
     Indication: DRUG USE FOR UNKNOWN INDICATION
     Dosage: 20 MG, DAILY
  14. LACTULOSE [Concomitant]
     Indication: DRUG USE FOR UNKNOWN INDICATION
     Dosage: 30 ML, Q6H
  15. RIFAXIMIN [Concomitant]
     Indication: DRUG USE FOR UNKNOWN INDICATION
     Dosage: 400 MG, UNK
     Route: 048
  16. ZINC SULFATE [Concomitant]
     Indication: DRUG USE FOR UNKNOWN INDICATION
     Dosage: 220 UNK, UNK
     Route: 048
  17. COLACE [Concomitant]
     Indication: DRUG USE FOR UNKNOWN INDICATION
  18. MAGNESIUM OXIDE [Concomitant]
     Indication: DRUG USE FOR UNKNOWN INDICATION
     Dosage: 250 MG, UNK
  19. SENNA-MINT WAF [Concomitant]
     Indication: DRUG USE FOR UNKNOWN INDICATION
  20. INSULIN [Concomitant]
     Indication: DRUG USE FOR UNKNOWN INDICATION

REACTIONS (3)
  - HEPATIC ENCEPHALOPATHY [None]
  - HEPATITIS C [None]
  - SUBSTANCE ABUSE [None]
